FAERS Safety Report 15783254 (Version 3)
Quarter: 2019Q2

REPORT INFORMATION
  Report Type: Report from Study
  Country: US (occurrence: US)
  Receive Date: 20190102
  Receipt Date: 20190604
  Transmission Date: 20190711
  Serious: Yes (Hospitalization, Other)
  Sender: FDA-Public Use
  Company Number: US-SA-2018SA341896

PATIENT
  Age: 69 Year
  Sex: Female

DRUGS (13)
  1. TOUJEO [Concomitant]
     Active Substance: INSULIN GLARGINE
     Dosage: 30 U, QD
     Route: 058
  2. FUROSEMIDE. [Concomitant]
     Active Substance: FUROSEMIDE
  3. INSULIN GLULISINE [Suspect]
     Active Substance: INSULIN GLULISINE
     Dosage: 6 UNITS EACH MEAL AND 8 UNITS BEFORE DINNER, TWICE DAILYUNK UNK, BID
     Route: 058
  4. LOVENOX [Concomitant]
     Active Substance: ENOXAPARIN SODIUM
     Dosage: UNK UNK, UNK
     Route: 058
  5. WARFARIN [Concomitant]
     Active Substance: WARFARIN
  6. TOUJEO [Concomitant]
     Active Substance: INSULIN GLARGINE
     Dosage: 27 U, QD (IN THE MORNING)
  7. INSULIN GLULISINE [Suspect]
     Active Substance: INSULIN GLULISINE
     Indication: TYPE 2 DIABETES MELLITUS
     Dosage: 24 U, QD
     Route: 058
  8. TOUJEO [Concomitant]
     Active Substance: INSULIN GLARGINE
     Indication: TYPE 2 DIABETES MELLITUS
     Dosage: 30 U, QD
     Route: 058
  9. ZETIA [Concomitant]
     Active Substance: EZETIMIBE
     Indication: BLOOD CHOLESTEROL
     Dosage: 10 UNK, QD
  10. CLONIDINE. [Concomitant]
     Active Substance: CLONIDINE
  11. BYSTOLIC [Concomitant]
     Active Substance: NEBIVOLOL HYDROCHLORIDE
  12. SPIRONOLACTONE. [Concomitant]
     Active Substance: SPIRONOLACTONE
  13. INSULIN GLULISINE [Suspect]
     Active Substance: INSULIN GLULISINE
     Dosage: 64 U (EACH MEAL EXCEPT 8PM BEFORE DINNER), QID

REACTIONS (23)
  - Arterial therapeutic procedure [Unknown]
  - Vascular graft [Unknown]
  - Surgery [Unknown]
  - Insomnia [Unknown]
  - Haemorrhage [Not Recovered/Not Resolved]
  - Cardiac pacemaker insertion [Unknown]
  - Fatigue [Unknown]
  - Blood glucose abnormal [Unknown]
  - Product dose omission [Unknown]
  - Hyperkeratosis [Unknown]
  - Somnolence [Unknown]
  - Pain [Not Recovered/Not Resolved]
  - Blood pressure abnormal [Unknown]
  - Unevaluable event [Not Recovered/Not Resolved]
  - Intentional product use issue [Unknown]
  - Skin disorder [Unknown]
  - Decreased appetite [Unknown]
  - Needle issue [Unknown]
  - Cardiac operation [Unknown]
  - Gangrene [Unknown]
  - Cough [Unknown]
  - Cataract operation [Unknown]
  - Rhinorrhoea [Unknown]

NARRATIVE: CASE EVENT DATE: 2016
